FAERS Safety Report 13269432 (Version 1)
Quarter: 2017Q1

REPORT INFORMATION
  Report Type: Spontaneous
  Country: CA (occurrence: CA)
  Receive Date: 20170224
  Receipt Date: 20170224
  Transmission Date: 20170428
  Serious: Yes (Other)
  Sender: FDA-Public Use
  Company Number: CA-UCBSA-2017007389

PATIENT
  Age: 16 Year
  Sex: Female
  Weight: 46 kg

DRUGS (11)
  1. VITAMIN A [Concomitant]
     Active Substance: VITAMIN A
     Indication: PRODUCT USED FOR UNKNOWN INDICATION
     Dosage: UNKNOWN DOSE
  2. PRIMIDONE. [Concomitant]
     Active Substance: PRIMIDONE
     Indication: MYOCLONIC EPILEPSY
     Dosage: UNKNOWN DOSE
  3. CARBAMAZEPINE. [Concomitant]
     Active Substance: CARBAMAZEPINE
     Indication: MYOCLONIC EPILEPSY
     Dosage: UNKNOWN DOSE
  4. VITAMIN E [Concomitant]
     Active Substance: .ALPHA.-TOCOPHEROL
     Indication: PRODUCT USED FOR UNKNOWN INDICATION
     Dosage: UNKNOWN DOSE
  5. LEVETIRACETAM. [Suspect]
     Active Substance: LEVETIRACETAM
     Indication: MYOCLONIC EPILEPSY
     Dosage: UNKNOWN DOSE
  6. TOPIRAMATE. [Concomitant]
     Active Substance: TOPIRAMATE
     Indication: MYOCLONIC EPILEPSY
     Dosage: UNKNOWN DOSE
  7. PERAMPANEL [Concomitant]
     Active Substance: PERAMPANEL
     Indication: MYOCLONIC EPILEPSY
     Dosage: UNKNOWN DOSE
  8. PHENYTOIN. [Concomitant]
     Active Substance: PHENYTOIN
     Indication: MYOCLONIC EPILEPSY
     Dosage: UNKNOWN DOSE
  9. CLONAZEPAM. [Concomitant]
     Active Substance: CLONAZEPAM
     Indication: MYOCLONIC EPILEPSY
     Dosage: UNKNOWN DOSE
  10. VITAMIN C [Concomitant]
     Active Substance: ASCORBIC ACID
     Indication: PRODUCT USED FOR UNKNOWN INDICATION
     Dosage: UNKNOWN DOSE
  11. PHENOBARBITAL. [Concomitant]
     Active Substance: PHENOBARBITAL
     Indication: MYOCLONIC EPILEPSY
     Dosage: UNKNOWN DOSE

REACTIONS (7)
  - Aphasia [Unknown]
  - MELAS syndrome [Unknown]
  - Dysarthria [Unknown]
  - Status epilepticus [Unknown]
  - Cognitive disorder [Unknown]
  - Seizure [Unknown]
  - Dysphagia [Unknown]
